FAERS Safety Report 10250844 (Version 3)
Quarter: 2014Q2

REPORT INFORMATION
  Report Type: Spontaneous
  Country: US (occurrence: None)
  Receive Date: 20140618
  Receipt Date: 20140624
  Transmission Date: 20141212
  Serious: Yes (Other)
  Sender: FDA-Public Use
  Company Number: ADR-2014-00844

PATIENT
  Age: 50 Year
  Sex: Male

DRUGS (1)
  1. LIORESAL INTRATHECAL [Suspect]
     Indication: MUSCLE SPASTICITY
     Dosage: 497MCG/DAY

REACTIONS (9)
  - Therapeutic response decreased [None]
  - Muscle spasticity [None]
  - Pocket erosion [None]
  - Stress [None]
  - Device deployment issue [None]
  - Device adhesion issue [None]
  - Staphylococcal infection [None]
  - Implant site fibrosis [None]
  - Condition aggravated [None]
